FAERS Safety Report 4726565-8 (Version None)
Quarter: 2005Q3

REPORT INFORMATION
  Report Type: 
  Country: None (occurrence: None)
  Receive Date: 20050727
  Receipt Date: 20050419
  Transmission Date: 20060218
  Serious: Yes (Death, Hospitalization)
  Sender: FDA-Public Use
  Company Number: US-MERCK-0504USA03728

PATIENT
  Age: 43 Year
  Sex: Male
  Weight: 86 kg

DRUGS (2)
  1. VIOXX [Suspect]
     Indication: ARTHRALGIA
     Route: 048
     Dates: start: 20010101, end: 20030324
  2. PERCOCET [Concomitant]
     Route: 065

REACTIONS (7)
  - ANGINA UNSTABLE [None]
  - ARTHROPATHY [None]
  - CARDIAC FAILURE CONGESTIVE [None]
  - DYSPNOEA [None]
  - HYPOAESTHESIA [None]
  - MENISCUS LESION [None]
  - SUDDEN DEATH [None]
